FAERS Safety Report 8862106 (Version 5)
Quarter: 2016Q1

REPORT INFORMATION
  Report Type: Spontaneous
  Country: US (occurrence: US)
  Receive Date: 20121026
  Receipt Date: 20160107
  Transmission Date: 20160526
  Serious: Yes (Death, Hospitalization, Other)
  Sender: FDA-Public Use
  Company Number: US-SANOFI-AVENTIS-2012SA078286

PATIENT
  Age: 66 Year
  Sex: Female
  Weight: 96 kg

DRUGS (8)
  1. NITROSTAT [Concomitant]
     Active Substance: NITROGLYCERIN
     Indication: CHEST PAIN
     Route: 060
  2. COLACE [Concomitant]
     Active Substance: DOCUSATE SODIUM
     Indication: CONSTIPATION
     Route: 048
  3. ASPIRIN. [Suspect]
     Active Substance: ASPIRIN
     Route: 048
     Dates: start: 200501
  4. PEPCID [Concomitant]
     Active Substance: FAMOTIDINE
     Dosage: GIVE 1 TABLET VIA G- TUBE EVERY NIGHT AT BEDTIME
     Route: 048
  5. MILK OF MAGNESIA [Concomitant]
     Active Substance: MAGNESIUM HYDROXIDE
     Indication: CONSTIPATION
  6. PLAVIX [Suspect]
     Active Substance: CLOPIDOGREL BISULFATE
     Indication: STENT PLACEMENT
     Route: 048
     Dates: start: 20050101, end: 20111125
  7. FERROUS SULFATE [Concomitant]
     Active Substance: FERROUS SULFATE\FERROUS SULFATE, DRIED
     Route: 048
  8. COLACE [Concomitant]
     Active Substance: DOCUSATE SODIUM
     Route: 048

REACTIONS (22)
  - Pneumonia [Fatal]
  - Brain injury [Unknown]
  - Myocardial infarction [Unknown]
  - Osteoarthritis [Unknown]
  - Gastrooesophageal reflux disease [Unknown]
  - Internal haemorrhage [Unknown]
  - Hypertension [Unknown]
  - Cardiac arrest [Unknown]
  - Post procedural haemorrhage [Unknown]
  - Hyperlipidaemia [Unknown]
  - Gout [Unknown]
  - Anaemia [Unknown]
  - Coronary artery disease [Unknown]
  - Obesity [Unknown]
  - Respiratory failure [Fatal]
  - Pyrexia [Unknown]
  - Urinary tract infection [Unknown]
  - Oesophageal spasm [Unknown]
  - Hypoxia [Unknown]
  - Cerebrovascular accident [Fatal]
  - Coma [Unknown]
  - Hypokalaemia [Unknown]

NARRATIVE: CASE EVENT DATE: 20050131
